FAERS Safety Report 25761869 (Version 1)
Quarter: 2025Q3

REPORT INFORMATION
  Report Type: Spontaneous
  Country: US (occurrence: US)
  Receive Date: 20250904
  Receipt Date: 20250904
  Transmission Date: 20251020
  Serious: Yes (Other)
  Sender: SANOFI AVENTIS
  Company Number: US-SA-2025SA264382

PATIENT
  Age: 62 Year
  Sex: Female
  Weight: 91.41 kg

DRUGS (3)
  1. DUPIXENT [Suspect]
     Active Substance: DUPILUMAB
     Indication: Dermatitis atopic
     Dosage: 300MG QOW
     Route: 058
     Dates: start: 2022
  2. ARIPIPRAZOLE [Suspect]
     Active Substance: ARIPIPRAZOLE
  3. VITAMIN D3 [Concomitant]
     Active Substance: CHOLECALCIFEROL

REACTIONS (8)
  - Cataract [Unknown]
  - Vitreous floaters [Unknown]
  - Bipolar disorder [Unknown]
  - Sleep disorder due to a general medical condition [Unknown]
  - Anxiety [Unknown]
  - Muscular weakness [Recovered/Resolved]
  - Dry skin [Recovering/Resolving]
  - Injection site pain [Unknown]

NARRATIVE: CASE EVENT DATE: 20250101
